FAERS Safety Report 17228003 (Version 1)
Quarter: 2020Q1

REPORT INFORMATION
  Report Type: Spontaneous
  Country: DE (occurrence: DE)
  Receive Date: 20200103
  Receipt Date: 20200103
  Transmission Date: 20200409
  Serious: Yes (Hospitalization)
  Sender: FDA-Public Use
  Company Number: DE-AUROBINDO-AUR-APL-2019-109242

PATIENT
  Age: 14 Year
  Sex: Female
  Weight: 80 kg

DRUGS (3)
  1. CEFPODOXIME FILM-COATED TABLETS [Suspect]
     Active Substance: CEFPODOXIME
     Indication: PRODUCT USED FOR UNKNOWN INDICATION
     Dosage: EINIGE TABLETTEN
     Route: 048
     Dates: start: 20190304, end: 20190304
  2. IBUPROFEN. [Suspect]
     Active Substance: IBUPROFEN
     Indication: PRODUCT USED FOR UNKNOWN INDICATION
     Dosage: 8000 MILLIGRAM,DAILY DOSE: 8000 MG MILLGRAM(S) EVERY TOTAL 20 SEPARATED DOSES
     Route: 048
     Dates: start: 20190304, end: 20190304
  3. PARACETAMOL [Suspect]
     Active Substance: ACETAMINOPHEN
     Indication: PRODUCT USED FOR UNKNOWN INDICATION
     Dosage: 13000 MILLIGRAM,DAILY DOSE: 13000 MG MILLGRAM(S) EVERY TOTAL 26 SEPARATED DOSES
     Route: 048
     Dates: start: 20190304, end: 20190304

REACTIONS (4)
  - Gastrointestinal pain [Unknown]
  - Vomiting [Unknown]
  - Toxicity to various agents [Unknown]
  - Headache [Unknown]

NARRATIVE: CASE EVENT DATE: 20190304
